FAERS Safety Report 9675805 (Version 1)
Quarter: 2013Q4

REPORT INFORMATION
  Report Type: Spontaneous
  Country: RU (occurrence: RU)
  Receive Date: 20131107
  Receipt Date: 20131107
  Transmission Date: 20140711
  Serious: Yes (Other)
  Sender: FDA-Public Use
  Company Number: RU-BRISTOL-MYERS SQUIBB COMPANY-19717404

PATIENT
  Sex: 0

DRUGS (1)
  1. BARACLUDE [Suspect]

REACTIONS (2)
  - Depression [Unknown]
  - Suicidal ideation [Unknown]
